FAERS Safety Report 25074301 (Version 2)
Quarter: 2025Q2

REPORT INFORMATION
  Report Type: Spontaneous
  Country: US (occurrence: US)
  Receive Date: 20250313
  Receipt Date: 20250417
  Transmission Date: 20250716
  Serious: Yes (Other)
  Sender: BAUSCH AND LOMB
  Company Number: US-BAUSCH-BL-2025-003245

PATIENT
  Age: 71 Year
  Sex: Female
  Weight: 72.64 kg

DRUGS (2)
  1. TRULANCE [Suspect]
     Active Substance: PLECANATIDE
     Indication: Irritable bowel syndrome
     Dosage: 1 TABLET BY MOUTH EVERY MORNING FOR ABOUT 2.5 YEARS
     Route: 048
     Dates: start: 2022, end: 2025
  2. COLACE [Concomitant]
     Active Substance: DOCUSATE SODIUM
     Indication: Product used for unknown indication
     Dosage: TWO COLACE

REACTIONS (6)
  - Intervertebral disc compression [Recovered/Resolved]
  - Tremor [Recovered/Resolved]
  - Procedural pain [Recovered/Resolved]
  - Sleep disorder due to general medical condition, insomnia type [Recovered/Resolved]
  - Memory impairment [Recovered/Resolved]
  - Product dose omission issue [Unknown]

NARRATIVE: CASE EVENT DATE: 20250305
